FAERS Safety Report 6388919-6 (Version None)
Quarter: 2009Q4

REPORT INFORMATION
  Report Type: 
  Country: None (occurrence: None)
  Receive Date: 20091001
  Receipt Date: 20090918
  Transmission Date: 20100525
  Serious: Yes (Life-Threatening, Hospitalization, Disabling, Other)
  Sender: FDA-Public Use
  Company Number: 002946

PATIENT
  Age: 95 Year
  Sex: Female

DRUGS (5)
  1. MACUGEN [Suspect]
     Dosage: 1 EVERY 6 WEEKS, INTRAOCULAR
     Route: 031
     Dates: start: 20070727, end: 20090109
  2. ACETYLSALICYLATE LYSINE (ACETYLSALICYLATE LYSINE) [Concomitant]
  3. SIMVASTATIN [Concomitant]
  4. AMLODIPINE [Concomitant]
  5. GALENIC         /BENAZEPRIL/HYDROCHLOROTHIAZIDE/ [Concomitant]

REACTIONS (2)
  - CEREBROVASCULAR ACCIDENT [None]
  - SLIPPING RIB SYNDROME [None]
